FAERS Safety Report 8808548 (Version 1)
Quarter: 2012Q4

REPORT INFORMATION
  Report Type: Spontaneous
  Country: US (occurrence: None)
  Receive Date: 20120920
  Receipt Date: 20120920
  Transmission Date: 20130627
  Serious: No
  Sender: FDA-Public Use
  Company Number: None

PATIENT
  Age: 73 Year
  Sex: Male
  Weight: 88 kg

DRUGS (1)
  1. INSULIN [Suspect]
     Dosage: 85 units, every day, sq
     Dates: start: 20120601, end: 20120614

REACTIONS (1)
  - Hyperaesthesia [None]
